FAERS Safety Report 9537137 (Version 1)
Quarter: 2013Q3

REPORT INFORMATION
  Report Type: Spontaneous
  Country: US (occurrence: US)
  Receive Date: 20130919
  Receipt Date: 20130919
  Transmission Date: 20140515
  Serious: Yes (Hospitalization)
  Sender: FDA-Public Use
  Company Number: US-009507513-1309USA005748

PATIENT
  Sex: Male

DRUGS (1)
  1. ZOCOR [Suspect]
     Dosage: 10 MG, ONCE DAILY
     Route: 048

REACTIONS (4)
  - Fatigue [Unknown]
  - Asthenia [Unknown]
  - Fatigue [Not Recovered/Not Resolved]
  - Asthenia [Not Recovered/Not Resolved]
